FAERS Safety Report 7455748-1 (Version None)
Quarter: 2011Q2

REPORT INFORMATION
  Report Type: 
  Country: None (occurrence: None)
  Receive Date: 20110503
  Receipt Date: 20110113
  Transmission Date: 20111010
  Serious: Yes (Hospitalization, Disabling, Other)
  Sender: FDA-Public Use
  Company Number: PHHY2011CL02771

PATIENT
  Age: 71 Year
  Sex: Male

DRUGS (2)
  1. OMEPRAZOLE [Concomitant]
  2. ZOLEDRONIC ACID [Suspect]
     Indication: OSTEOPOROSIS
     Dosage: 5 MG

REACTIONS (3)
  - ROTATOR CUFF SYNDROME [None]
  - UPPER LIMB FRACTURE [None]
  - TENDON INJURY [None]
